FAERS Safety Report 8879971 (Version 1)
Quarter: 2012Q4

REPORT INFORMATION
  Report Type: 
  Country: US (occurrence: US)
  Receive Date: 20121101
  Receipt Date: 20121101
  Transmission Date: 20130627
  Serious: Yes (Other)
  Sender: FDA-Public Use
  Company Number: US-AMGEN-USASP2012067533

PATIENT
  Age: 49 Year
  Sex: Female

DRUGS (1)
  1. ENBREL [Suspect]
     Indication: ANKYLOSING SPONDYLITIS
     Dosage: 50 mg, qwk
     Dates: start: 20111206, end: 20121021

REACTIONS (7)
  - Wound necrosis [Not Recovered/Not Resolved]
  - Arthropod bite [Not Recovered/Not Resolved]
  - Erythema [Not Recovered/Not Resolved]
  - Skin discolouration [Not Recovered/Not Resolved]
  - Secretion discharge [Not Recovered/Not Resolved]
  - Wound infection pseudomonas [Not Recovered/Not Resolved]
  - Abscess [Not Recovered/Not Resolved]
